FAERS Safety Report 5473776-2 (Version None)
Quarter: 2007Q3

REPORT INFORMATION
  Report Type: 
  Country: None (occurrence: None)
  Receive Date: 20070831
  Receipt Date: 20070626
  Transmission Date: 20080115
  Serious: No
  Sender: FDA-Public Use
  Company Number: 243588

PATIENT
  Age: 78 Year
  Sex: Female

DRUGS (7)
  1. LUCENTIS [Suspect]
     Indication: DRUG USE FOR UNKNOWN INDICATION
     Dates: start: 20070625
  2. ASPIRIN [Concomitant]
  3. CENTRUM(MINERALS NOS, MULTIVITAMINS NOS) [Concomitant]
  4. LOTREL(AMLODIPINE BESYLATE, BENAZEPRIL HYDROCHLORIDE) [Concomitant]
  5. HYDROCHLOROTHIAZIDE [Concomitant]
  6. LIPITOR [Concomitant]
  7. ZETIA [Concomitant]

REACTIONS (1)
  - VISUAL DISTURBANCE [None]
